FAERS Safety Report 5595820-4 (Version None)
Quarter: 2008Q1

REPORT INFORMATION
  Report Type: 
  Country: None (occurrence: None)
  Receive Date: 20080118
  Receipt Date: 20080109
  Transmission Date: 20080703
  Serious: Yes (Hospitalization)
  Sender: FDA-Public Use
  Company Number: US-ROCHE-540319

PATIENT
  Age: 49 Year
  Sex: Female

DRUGS (4)
  1. CELLCEPT [Suspect]
     Indication: PROPHYLAXIS AGAINST TRANSPLANT REJECTION
     Route: 048
  2. CELLCEPT [Suspect]
     Route: 048
  3. STEROID NOS [Concomitant]
     Dosage: HIGH DOSE
  4. TACROLIMUS [Concomitant]
     Dosage: DRUG REPORTED AS: TACRALIMINE

REACTIONS (2)
  - FALL [None]
  - ORTHOSTATIC HYPOTENSION [None]
